FAERS Safety Report 8861087 (Version 7)
Quarter: 2013Q4

REPORT INFORMATION
  Report Type: Spontaneous
  Country: JP (occurrence: JP)
  Receive Date: 20121025
  Receipt Date: 20131003
  Transmission Date: 20140711
  Serious: Yes (Hospitalization, Disabling, Congenital Anomaly, Other)
  Sender: FDA-Public Use
  Company Number: JP-GILEAD-2012-0063294

PATIENT
  Age: 0 Day
  Sex: Female

DRUGS (5)
  1. TENOFOVIR DISOPROXIL FUMARATE [Suspect]
     Indication: HIV INFECTION
     Dosage: UNK
     Route: 064
     Dates: start: 20120227, end: 20120328
  2. KALETRA [Suspect]
     Indication: HIV INFECTION
     Dosage: UNK
     Route: 064
  3. RALTEGRAVIR [Suspect]
     Indication: HIV INFECTION
     Dosage: UNK
  4. ZIAGEN [Suspect]
     Indication: HIV INFECTION
     Dosage: UNK
     Route: 064
     Dates: start: 20111128, end: 20120328
  5. RETROVIR [Suspect]
     Indication: HIV INFECTION
     Dosage: UNK
     Route: 042
     Dates: start: 20120328, end: 20120510

REACTIONS (7)
  - Foetal growth restriction [Unknown]
  - Renal tubular disorder [Recovered/Resolved]
  - Patent ductus arteriosus [Recovered/Resolved]
  - Polycythaemia [Recovered/Resolved]
  - Renal impairment [Recovered/Resolved]
  - Anaemia [Recovered/Resolved]
  - Developmental delay [Unknown]
